FAERS Safety Report 9115491 (Version 1)
Quarter: 2013Q1

REPORT INFORMATION
  Report Type: Spontaneous
  Country: US (occurrence: None)
  Receive Date: 20130221
  Receipt Date: 20130221
  Transmission Date: 20140127
  Serious: No
  Sender: FDA-Public Use
  Company Number: None

PATIENT
  Age: 54 Year
  Sex: Female

DRUGS (1)
  1. CIMZIA KIT STARTER 6X200MG/ML PFS [Suspect]
     Route: 058

REACTIONS (3)
  - Headache [None]
  - Influenza like illness [None]
  - Feeling abnormal [None]
